FAERS Safety Report 8586763-2 (Version None)
Quarter: 2012Q3

REPORT INFORMATION
  Report Type: 
  Country: None (occurrence: None)
  Receive Date: 20120810
  Receipt Date: 20120803
  Transmission Date: 20120928
  Serious: Yes (Other)
  Sender: FDA-Public Use
  Company Number: US-ASTRAZENECA-2012SE55349

PATIENT
  Age: 79 Year
  Sex: Female

DRUGS (1)
  1. BRILINTA [Suspect]
     Route: 048

REACTIONS (4)
  - ATRIAL FIBRILLATION [None]
  - DYSPNOEA [None]
  - DIZZINESS [None]
  - NAUSEA [None]
